FAERS Safety Report 10494950 (Version 1)
Quarter: 2014Q4

REPORT INFORMATION
  Report Type: Spontaneous
  Country: US (occurrence: US)
  Receive Date: 20141003
  Receipt Date: 20141003
  Transmission Date: 20150528
  Serious: No
  Sender: FDA-Public Use
  Company Number: US-TEVA-512688USA

PATIENT
  Age: 38 Year
  Sex: Male
  Weight: 108.96 kg

DRUGS (4)
  1. TAMOXIFEN [Concomitant]
     Active Substance: TAMOXIFEN
     Indication: BLOOD OESTROGEN ABNORMAL
     Dosage: 10 MILLIGRAM DAILY;
     Route: 048
  2. NUVIGIL [Suspect]
     Active Substance: ARMODAFINIL
     Indication: POOR QUALITY SLEEP
     Dosage: 200 MILLIGRAM DAILY;
     Route: 065
  3. ORPHENADRINE [Suspect]
     Active Substance: ORPHENADRINE
     Indication: MUSCLE RELAXANT THERAPY
     Dosage: 100 MILLIGRAM DAILY; TOOK FOR A COUPLE OF DAYS
     Route: 065
     Dates: start: 201408, end: 201408
  4. ANDROGEL [Concomitant]
     Active Substance: TESTOSTERONE
     Indication: BLOOD TESTOSTERONE DECREASED

REACTIONS (4)
  - Breast disorder male [Recovered/Resolved]
  - Nipple disorder [Recovered/Resolved]
  - Skin atrophy [Recovered/Resolved]
  - Drug ineffective [Recovered/Resolved]

NARRATIVE: CASE EVENT DATE: 201408
